FAERS Safety Report 9257403 (Version 1)
Quarter: 2013Q2

REPORT INFORMATION
  Report Type: Spontaneous
  Country: FR (occurrence: FR)
  Receive Date: 20130426
  Receipt Date: 20130426
  Transmission Date: 20140414
  Serious: Yes (Other)
  Sender: FDA-Public Use
  Company Number: FR-MERCK-1303FRA000815

PATIENT
  Age: 81 Year
  Sex: Male
  Weight: 84 kg

DRUGS (5)
  1. JANUMET [Suspect]
     Indication: INSULIN-REQUIRING TYPE 2 DIABETES MELLITUS
     Dosage: 2 DF, QD
     Route: 048
     Dates: start: 20100525, end: 20130226
  2. METFORMIN [Concomitant]
     Indication: INSULIN-REQUIRING TYPE 2 DIABETES MELLITUS
     Dosage: 1000 MG, QD
     Dates: start: 2009, end: 20130226
  3. LANTUS [Concomitant]
     Indication: INSULIN-REQUIRING TYPE 2 DIABETES MELLITUS
     Dosage: 40 IU, QPM
     Dates: start: 2009
  4. CRESTOR [Concomitant]
     Indication: INSULIN-REQUIRING TYPE 2 DIABETES MELLITUS
     Dosage: 5 MG, QOD
     Dates: start: 2010
  5. EZETROL [Concomitant]
     Indication: INSULIN-REQUIRING TYPE 2 DIABETES MELLITUS
     Dosage: 10 MG, QOD
     Dates: start: 2009

REACTIONS (1)
  - Ageusia [Recovered/Resolved]
